FAERS Safety Report 18194581 (Version 1)
Quarter: 2020Q3

REPORT INFORMATION
  Report Type: Spontaneous
  Country: US (occurrence: US)
  Receive Date: 20200825
  Receipt Date: 20200825
  Transmission Date: 20201103
  Serious: No
  Sender: FDA-Public Use
  Company Number: US-EVOLUS, INC.-2020EV000409

PATIENT

DRUGS (2)
  1. JEUVEAU [Suspect]
     Active Substance: PRABOTULINUMTOXINA-XVFS
     Indication: PRODUCT USED FOR UNKNOWN INDICATION
  2. JEUVEAU [Suspect]
     Active Substance: PRABOTULINUMTOXINA-XVFS
     Indication: SKIN WRINKLING
     Dates: start: 20200606

REACTIONS (3)
  - Off label use [Unknown]
  - Drug ineffective [Unknown]
  - Product preparation issue [Unknown]
